FAERS Safety Report 6149001-6 (Version None)
Quarter: 2009Q2

REPORT INFORMATION
  Report Type: 
  Country: None (occurrence: None)
  Receive Date: 20090406
  Receipt Date: 20090330
  Transmission Date: 20091009
  Serious: Yes (Death)
  Sender: FDA-Public Use
  Company Number: OSCN-PR-0903S-0177

PATIENT
  Sex: Male

DRUGS (5)
  1. OMNISCAN [Suspect]
     Indication: DRUG USE FOR UNKNOWN INDICATION
     Dosage: NR, SINGLE DOSE, I.V.
     Route: 042
     Dates: start: 20030715, end: 20030715
  2. OMNISCAN [Suspect]
     Indication: DRUG USE FOR UNKNOWN INDICATION
     Dosage: NR, SINGLE DOSE, I.V.
     Route: 042
     Dates: start: 20030918, end: 20030918
  3. OMNISCAN [Suspect]
     Indication: DRUG USE FOR UNKNOWN INDICATION
     Dosage: NR, SINGLE DOSE, I.V.
     Route: 042
     Dates: start: 20040715, end: 20040715
  4. OMNISCAN [Suspect]
     Indication: DRUG USE FOR UNKNOWN INDICATION
     Dosage: NR, SINGLE DOSE, I.V.
     Route: 042
     Dates: start: 20050728, end: 20050728
  5. OMNISCAN [Suspect]
     Indication: DRUG USE FOR UNKNOWN INDICATION
     Dosage: NR, SINGLE DOSE, I.V.
     Route: 042
     Dates: start: 20061005, end: 20061005

REACTIONS (1)
  - NEPHROGENIC SYSTEMIC FIBROSIS [None]
